FAERS Safety Report 24895181 (Version 1)
Quarter: 2025Q1

REPORT INFORMATION
  Report Type: Spontaneous
  Country: CA (occurrence: CA)
  Receive Date: 20250128
  Receipt Date: 20250128
  Transmission Date: 20250408
  Serious: Yes (Other)
  Sender: BRACCO
  Company Number: CA-BRACCO-2025CA00394

PATIENT
  Sex: Female

DRUGS (1)
  1. ISOVUE [Suspect]
     Active Substance: IOPAMIDOL

REACTIONS (3)
  - Hyperhidrosis [Unknown]
  - Language disorder [Unknown]
  - Tongue disorder [Unknown]
